FAERS Safety Report 11825860 (Version 1)
Quarter: 2015Q4

REPORT INFORMATION
  Report Type: Spontaneous
  Country: JP (occurrence: JP)
  Receive Date: 20151211
  Receipt Date: 20151211
  Transmission Date: 20160305
  Serious: Yes (Other)
  Sender: FDA-Public Use
  Company Number: JP-ELI_LILLY_AND_COMPANY-JP201512001687

PATIENT
  Age: 91 Year
  Sex: Female

DRUGS (9)
  1. TRAMCET [Concomitant]
     Active Substance: ACETAMINOPHEN\TRAMADOL
     Route: 048
  2. CEPHADOL [Concomitant]
     Active Substance: DIPHENIDOL HYDROCHLORIDE
  3. QUETIAPINE                         /01270902/ [Concomitant]
  4. DEPAS [Concomitant]
     Active Substance: ETIZOLAM
  5. LOXOPROFEN                         /00890702/ [Concomitant]
     Active Substance: LOXOPROFEN
     Dosage: UNK, PRN
     Route: 048
  6. CYMBALTA [Suspect]
     Active Substance: DULOXETINE HYDROCHLORIDE
     Indication: PRODUCT USED FOR UNKNOWN INDICATION
     Dosage: 40 MG, EACH MORNING
     Route: 048
     Dates: start: 20151117
  7. MAGMITT [Concomitant]
     Active Substance: MAGNESIUM OXIDE
  8. REBAMIPIDE [Concomitant]
     Active Substance: REBAMIPIDE
  9. FERROMIA [Concomitant]
     Active Substance: FERROUS CITRATE

REACTIONS (2)
  - Hallucination, visual [Unknown]
  - Dementia [Unknown]

NARRATIVE: CASE EVENT DATE: 201511
